FAERS Safety Report 5730837-8 (Version None)
Quarter: 2008Q2

REPORT INFORMATION
  Report Type: 
  Country: None (occurrence: None)
  Receive Date: 20080507
  Receipt Date: 20080428
  Transmission Date: 20081010
  Serious: Yes (Other)
  Sender: FDA-Public Use
  Company Number: TR-WYE-H03846508

PATIENT
  Sex: Female
  Weight: 70 kg

DRUGS (2)
  1. EFFEXOR XR [Suspect]
     Indication: GENERALISED ANXIETY DISORDER
     Route: 048
     Dates: start: 20080131, end: 20080325
  2. MILNACIPRAN [Concomitant]
     Route: 048
     Dates: start: 20080301

REACTIONS (1)
  - MENSTRUATION DELAYED [None]
